FAERS Safety Report 7443713-X (Version None)
Quarter: 2011Q2

REPORT INFORMATION
  Report Type: 
  Country: None (occurrence: None)
  Receive Date: 20110428
  Receipt Date: 20110418
  Transmission Date: 20111010
  Serious: Yes (Hospitalization)
  Sender: FDA-Public Use
  Company Number: US-ABBOTT-11P-163-0715094-00

PATIENT
  Age: 29 Year
  Sex: Male

DRUGS (6)
  1. RITONAVIR [Suspect]
     Indication: HIV INFECTION
     Route: 048
     Dates: start: 20110310, end: 20110310
  2. EMTRICITABINE W/TENOFOVIR [Concomitant]
     Indication: HIV INFECTION
     Dates: start: 20110310, end: 20110310
  3. ATAZANAVIR [Concomitant]
     Indication: HIV INFECTION
     Route: 048
     Dates: start: 20110310, end: 20110310
  4. ATRIPLA [Concomitant]
     Indication: HIV INFECTION
     Route: 048
     Dates: end: 20110310
  5. ZOLOFT [Concomitant]
     Indication: PRODUCT USED FOR UNKNOWN INDICATION
     Route: 048
  6. ATRIPLA [Concomitant]
     Route: 048
     Dates: start: 20110314

REACTIONS (1)
  - GASTROINTESTINAL TOXICITY [None]
